FAERS Safety Report 9162571 (Version 1)
Quarter: 2013Q1

REPORT INFORMATION
  Report Type: Spontaneous
  Country: GB (occurrence: GB)
  Receive Date: 20130314
  Receipt Date: 20130314
  Transmission Date: 20140127
  Serious: Yes (Hospitalization)
  Sender: FDA-Public Use
  Company Number: GB-MYLANLABS-2013S1004908

PATIENT
  Age: 57 Year
  Sex: Male

DRUGS (3)
  1. CLOMIPRAMINE [Suspect]
     Dosage: TITRATED UP TO 150MG NOCTE
     Route: 065
  2. PRIADEL [Interacting]
     Dosage: 800MG NOCTE
     Route: 065
  3. QUETIAPINE [Concomitant]
     Dosage: 500MG NOCTE
     Route: 065

REACTIONS (4)
  - Dyspraxia [Recovering/Resolving]
  - Delirium [Recovering/Resolving]
  - Drug interaction [Recovering/Resolving]
  - Memory impairment [Unknown]
